FAERS Safety Report 5363694-2 (Version None)
Quarter: 2007Q2

REPORT INFORMATION
  Report Type: 
  Country: None (occurrence: None)
  Receive Date: 20070620
  Receipt Date: 20070615
  Transmission Date: 20071010
  Serious: Yes (Other)
  Sender: FDA-Public Use
  Company Number: US-AVENTIS-200711435US

PATIENT
  Sex: Female
  Weight: 72 kg

DRUGS (2)
  1. KETEK [Suspect]
     Dosage: DOSE: 2 TABLETS
     Route: 048
     Dates: start: 20060403, end: 20070511
  2. KETEK [Suspect]
     Dosage: DOSE: 1 TABLET
     Route: 048
     Dates: start: 20070512, end: 20060519

REACTIONS (8)
  - ALANINE AMINOTRANSFERASE INCREASED [None]
  - ASPARTATE AMINOTRANSFERASE INCREASED [None]
  - BILIRUBIN CONJUGATED INCREASED [None]
  - BLOOD BILIRUBIN INCREASED [None]
  - EYE DISORDER [None]
  - FATIGUE [None]
  - HEPATIC ENZYME INCREASED [None]
  - HEPATOCELLULAR DAMAGE [None]
